FAERS Safety Report 8293759-7 (Version None)
Quarter: 2012Q2

REPORT INFORMATION
  Report Type: 
  Country: None (occurrence: None)
  Receive Date: 20120413
  Receipt Date: 20120321
  Transmission Date: 20120825
  Serious: Yes (Other)
  Sender: FDA-Public Use
  Company Number: US-2012-10380

PATIENT
  Age: 3 Year
  Sex: Female

DRUGS (6)
  1. CYCLOPHOSPHAMIDE [Concomitant]
  2. BUSULFAN [Suspect]
  3. METHYLPREDNISOLONE [Concomitant]
  4. METHYLPREDNISOLONE [Concomitant]
  5. ANTITHYMOCYTE IMMUNEGLOBULIN (ANTITHYMOCYTE IMMUNEOGLBULIN) [Concomitant]
  6. CYCLOSPORINE [Concomitant]

REACTIONS (5)
  - CARDIOMYOPATHY [None]
  - HYPERTENSION [None]
  - SEPSIS [None]
  - GRAFT VERSUS HOST DISEASE [None]
  - LEUKODYSTROPHY [None]
